FAERS Safety Report 19134211 (Version 6)
Quarter: 2023Q1

REPORT INFORMATION
  Report Type: Spontaneous
  Country: US (occurrence: US)
  Receive Date: 20210414
  Receipt Date: 20230301
  Transmission Date: 20230417
  Serious: Yes (Other)
  Sender: FDA-Public Use
  Company Number: US-PFIZER INC-2021105082

PATIENT
  Age: 67 Year
  Sex: Female

DRUGS (5)
  1. RETACRIT [Suspect]
     Active Substance: EPOETIN ALFA-EPBX
     Dosage: 10000 IU (EVERY 2 WEEKS)
     Route: 058
  2. RETACRIT [Suspect]
     Active Substance: EPOETIN ALFA-EPBX
     Dosage: 20000 IU, WEEKLY (TAKE 20,000 UNIT(S) EVERY WEEK BY INJECTION ROUTE FOR 30 DAYS)
     Dates: start: 2020
  3. PROCRIT [Suspect]
     Active Substance: ERYTHROPOIETIN
     Dosage: 10000 IU, WEEKLY
     Dates: start: 20220411
  4. PROCRIT [Suspect]
     Active Substance: ERYTHROPOIETIN
     Dosage: 10000 IU, WEEKLY
     Dates: start: 20220914
  5. PROCRIT [Suspect]
     Active Substance: ERYTHROPOIETIN
     Dosage: 10000 IU, WEEKLY
     Dates: start: 20221025

REACTIONS (5)
  - Haemoglobin decreased [Unknown]
  - Pyrexia [Unknown]
  - Malaise [Unknown]
  - Full blood count decreased [Unknown]
  - Blood iron decreased [Unknown]

NARRATIVE: CASE EVENT DATE: 20220601
